FAERS Safety Report 9764972 (Version 1)
Quarter: 2013Q4

REPORT INFORMATION
  Report Type: Spontaneous
  Country: US (occurrence: None)
  Receive Date: 20131216
  Receipt Date: 20131216
  Transmission Date: 20140711
  Serious: No
  Sender: FDA-Public Use
  Company Number: None

PATIENT
  Age: 56 None
  Sex: Male

DRUGS (4)
  1. LOSARTAN [Concomitant]
  2. ALEVE [Concomitant]
  3. IBUPROFEN [Concomitant]
  4. MERCAPTOPURINE [Suspect]

REACTIONS (2)
  - Malaise [None]
  - Adverse drug reaction [None]
